FAERS Safety Report 23021810 (Version 1)
Quarter: 2023Q4

REPORT INFORMATION
  Report Type: Spontaneous
  Country: US (occurrence: US)
  Receive Date: 20231003
  Receipt Date: 20231003
  Transmission Date: 20240110
  Serious: Yes (Other)
  Sender: FDA-Public Use
  Company Number: US-PFIZER INC-202300307775

PATIENT
  Age: 68 Year
  Sex: Female

DRUGS (3)
  1. PAXLOVID [Suspect]
     Active Substance: NIRMATRELVIR\RITONAVIR
     Indication: COVID-19 treatment
     Dosage: UNK
     Dates: start: 20230919, end: 20230920
  2. RIZATRIPTAN [Concomitant]
     Active Substance: RIZATRIPTAN
     Dosage: 10 MG
     Dates: start: 20230918, end: 20230918
  3. FLUTICASONE PROPIONATE [Concomitant]
     Active Substance: FLUTICASONE PROPIONATE
     Dosage: 50 UG
     Dates: start: 20080526, end: 20230922

REACTIONS (13)
  - Haematemesis [Recovered/Resolved with Sequelae]
  - Malaise [Recovered/Resolved with Sequelae]
  - Nausea [Recovered/Resolved with Sequelae]
  - Pharyngeal ulceration [Recovered/Resolved with Sequelae]
  - Headache [Recovered/Resolved with Sequelae]
  - Myalgia [Recovered/Resolved with Sequelae]
  - Arthralgia [Recovered/Resolved with Sequelae]
  - Gingival pruritus [Recovered/Resolved with Sequelae]
  - Chest discomfort [Recovered/Resolved with Sequelae]
  - Pharyngeal swelling [Recovered/Resolved with Sequelae]
  - Lip swelling [Recovered/Resolved with Sequelae]
  - Dysphonia [Recovered/Resolved with Sequelae]
  - Oxygen saturation decreased [Recovered/Resolved with Sequelae]

NARRATIVE: CASE EVENT DATE: 20230919
